FAERS Safety Report 8255154-6 (Version None)
Quarter: 2012Q1

REPORT INFORMATION
  Report Type: 
  Country: None (occurrence: None)
  Receive Date: 20120330
  Receipt Date: 20120316
  Transmission Date: 20120608
  Serious: Yes (Other)
  Sender: FDA-Public Use
  Company Number: 2012SA019932

PATIENT
  Sex: Female

DRUGS (1)
  1. GOLD BOND [Suspect]
     Indication: DRY SKIN
     Dosage: UNKNOWN
     Dates: start: 20111001

REACTIONS (1)
  - BREAST MASS [None]
